FAERS Safety Report 10672106 (Version 2)
Quarter: 2014Q4

REPORT INFORMATION
  Report Type: Report from Study
  Country: CA (occurrence: CA)
  Receive Date: 20141223
  Receipt Date: 20141223
  Transmission Date: 20150529
  Serious: Yes (Hospitalization, Other)
  Sender: FDA-Public Use
  Company Number: CA-ABBVIE-12P-028-0892362-00

PATIENT
  Age: 55 Year
  Sex: Female
  Weight: 68.1 kg

DRUGS (2)
  1. HUMIRA [Suspect]
     Active Substance: ADALIMUMAB
     Indication: CROHN^S DISEASE
     Route: 058
     Dates: start: 20100811
  2. HUMIRA [Suspect]
     Active Substance: ADALIMUMAB
     Route: 058
     Dates: end: 201201

REACTIONS (7)
  - Renal impairment [Not Recovered/Not Resolved]
  - Intestinal perforation [Unknown]
  - Drug ineffective [Recovering/Resolving]
  - Injection site pain [Unknown]
  - Renal cancer [Recovered/Resolved]
  - Appendicitis perforated [Unknown]
  - Injection site pain [Unknown]

NARRATIVE: CASE EVENT DATE: 20100811
